FAERS Safety Report 6493335-2 (Version None)
Quarter: 2009Q4

REPORT INFORMATION
  Report Type: 
  Country: None (occurrence: None)
  Receive Date: 20091214
  Receipt Date: 20091204
  Transmission Date: 20100525
  Serious: Yes (Hospitalization)
  Sender: FDA-Public Use
  Company Number: US-ASTRAZENECA-2009SE30274

PATIENT
  Sex: Male

DRUGS (2)
  1. PRILOSEC OTC [Suspect]
     Indication: NAUSEA
     Route: 048
  2. PRILOSEC OTC [Suspect]
     Indication: DYSPEPSIA
     Route: 048

REACTIONS (2)
  - RENAL FAILURE [None]
  - VOMITING [None]
